FAERS Safety Report 12270094 (Version 3)
Quarter: 2016Q3

REPORT INFORMATION
  Report Type: Report from Study
  Country: BR (occurrence: BR)
  Receive Date: 20160415
  Receipt Date: 20160808
  Transmission Date: 20161109
  Serious: Yes (Other)
  Sender: FDA-Public Use
  Company Number: BR-ROCHE-1726789

PATIENT
  Sex: Female
  Weight: 80 kg

DRUGS (5)
  1. XOLAIR [Suspect]
     Active Substance: OMALIZUMAB
     Indication: URTICARIA
     Route: 058
     Dates: start: 2014
  2. XOLAIR [Suspect]
     Active Substance: OMALIZUMAB
     Indication: HYPERSENSITIVITY
     Route: 058
  3. XOLAIR [Suspect]
     Active Substance: OMALIZUMAB
     Route: 058
     Dates: start: 20160722
  4. TRESIBA [Concomitant]
     Active Substance: INSULIN DEGLUDEC
  5. XOLAIR [Suspect]
     Active Substance: OMALIZUMAB
     Route: 058
     Dates: start: 201510

REACTIONS (6)
  - Hypersensitivity [Recovered/Resolved]
  - Cough [Unknown]
  - Influenza [Recovering/Resolving]
  - Product use issue [Unknown]
  - Rhinitis [Unknown]
  - Dysphonia [Recovering/Resolving]
